FAERS Safety Report 5120827-0 (Version None)
Quarter: 2006Q4

REPORT INFORMATION
  Report Type: 
  Country: None (occurrence: None)
  Receive Date: 20061005
  Receipt Date: 20060921
  Transmission Date: 20070319
  Serious: Yes (Hospitalization)
  Sender: FDA-Public Use
  Company Number: US-JNJFOC-20060401504

PATIENT
  Sex: Female
  Weight: 57.61 kg

DRUGS (2)
  1. ORTHO EVRA [Suspect]
     Indication: MENOPAUSAL SYMPTOMS
     Route: 062
  2. DILANTIN [Concomitant]
     Indication: CONVULSION

REACTIONS (4)
  - CEREBROVASCULAR ACCIDENT [None]
  - CONVULSION [None]
  - HYPERCHOLESTEROLAEMIA [None]
  - PROTEIN S DECREASED [None]
